FAERS Safety Report 25128273 (Version 1)
Quarter: 2025Q1

REPORT INFORMATION
  Report Type: Spontaneous
  Country: US (occurrence: US)
  Receive Date: 20250327
  Receipt Date: 20250327
  Transmission Date: 20250408
  Serious: No
  Sender: AUROBINDO
  Company Number: US-AUROBINDO-AUR-APL-2024-061280

PATIENT
  Age: 24 Year
  Sex: Female
  Weight: 45.351 kg

DRUGS (1)
  1. MEDROXYPROGESTERONE ACETATE [Suspect]
     Active Substance: MEDROXYPROGESTERONE ACETATE
     Indication: Contraception
     Route: 065
     Dates: start: 20241119, end: 20241119

REACTIONS (4)
  - Product colour issue [Unknown]
  - Product deposit [Unknown]
  - Product quality issue [Unknown]
  - Underdose [Unknown]
